FAERS Safety Report 25649907 (Version 1)
Quarter: 2025Q3

REPORT INFORMATION
  Report Type: Spontaneous
  Country: US (occurrence: None)
  Receive Date: 20250805
  Receipt Date: 20250805
  Transmission Date: 20251021
  Serious: Yes (Hospitalization, Disabling)
  Sender: FDA-CTU
  Company Number: None

PATIENT
  Age: 52 Year
  Sex: Male
  Weight: 90 kg

DRUGS (4)
  1. FINASTERIDE [Suspect]
     Active Substance: FINASTERIDE
     Indication: Androgenetic alopecia
     Dosage: OTHER QUANTITY : 1 TABLET(S);?FREQUENCY : DAILY;?
     Route: 048
     Dates: start: 20250626, end: 20250721
  2. PROPRANOLOL [Concomitant]
     Active Substance: PROPRANOLOL HYDROCHLORIDE
  3. GABAPENTIN [Concomitant]
     Active Substance: GABAPENTIN
  4. VITAMINS [Concomitant]
     Active Substance: VITAMINS

REACTIONS (18)
  - Panic attack [None]
  - Heart rate increased [None]
  - Hypertension [None]
  - Suicidal ideation [None]
  - Hypoaesthesia [None]
  - Neurological symptom [None]
  - Asthenia [None]
  - Fatigue [None]
  - Exercise tolerance decreased [None]
  - Insomnia [None]
  - Palpitations [None]
  - Muscular weakness [None]
  - Muscular weakness [None]
  - Paraesthesia [None]
  - Pain in extremity [None]
  - Depression [None]
  - Brain fog [None]
  - Impaired quality of life [None]

NARRATIVE: CASE EVENT DATE: 20250721
